FAERS Safety Report 24742750 (Version 1)
Quarter: 2024Q4

REPORT INFORMATION
  Report Type: Spontaneous
  Country: US (occurrence: None)
  Receive Date: 20241214
  Receipt Date: 20241214
  Transmission Date: 20250115
  Serious: Yes (Death, Life-Threatening, Hospitalization, Disabling)
  Sender: Public
  Company Number: None

PATIENT
  Age: 57 Year
  Sex: Male
  Weight: 83.25 kg

DRUGS (1)
  1. PLUVICTO [Suspect]
     Active Substance: LUTETIUM LU-177 VIPIVOTIDE TETRAXETAN
     Indication: Prostate cancer metastatic
     Dates: start: 20240905, end: 20241022

REACTIONS (10)
  - Hydronephrosis [None]
  - Toxicity to various agents [None]
  - Disseminated intravascular coagulation [None]
  - Subdural haematoma [None]
  - Brain herniation [None]
  - Hepatic enzyme abnormal [None]
  - Malnutrition [None]
  - Prostatic specific antigen increased [None]
  - Platelet count decreased [None]
  - Coagulopathy [None]

NARRATIVE: CASE EVENT DATE: 20241105
